FAERS Safety Report 7286070-4 (Version None)
Quarter: 2011Q1

REPORT INFORMATION
  Report Type: 
  Country: None (occurrence: None)
  Receive Date: 20110210
  Receipt Date: 20110208
  Transmission Date: 20110831
  Serious: Yes (Hospitalization)
  Sender: FDA-Public Use
  Company Number: JP-EISAI INC-E2020-07386-SPO-JP

PATIENT
  Age: 67 Year
  Sex: Female

DRUGS (5)
  1. ARICEPT [Suspect]
     Indication: DEMENTIA ALZHEIMER'S TYPE
     Route: 048
     Dates: start: 20100301, end: 20100822
  2. PAXIL [Concomitant]
  3. SILECE [Concomitant]
     Dosage: UNKNOWN, UNKNOWN
  4. CLONAZEPAM [Concomitant]
     Dosage: UNKNOWN, UNKNOWN
  5. DIAZEPAM [Concomitant]
     Dosage: UNKNOWN, UNKNOWN

REACTIONS (1)
  - ALTERED STATE OF CONSCIOUSNESS [None]
